FAERS Safety Report 8557454-9 (Version None)
Quarter: 2012Q3

REPORT INFORMATION
  Report Type: 
  Country: None (occurrence: None)
  Receive Date: 20120725
  Receipt Date: 20120725
  Transmission Date: 20120928
  Serious: No
  Sender: FDA-Public Use
  Company Number: None

PATIENT

DRUGS (1)
  1. PERCOCET [Suspect]

REACTIONS (7)
  - ILL-DEFINED DISORDER [None]
  - NERVOUS SYSTEM DISORDER [None]
  - HEADACHE [None]
  - TREMOR [None]
  - PRODUCT QUALITY ISSUE [None]
  - MALAISE [None]
  - INSOMNIA [None]
